FAERS Safety Report 17797274 (Version 1)
Quarter: 2020Q2

REPORT INFORMATION
  Report Type: Spontaneous
  Country: US (occurrence: US)
  Receive Date: 20200515
  Receipt Date: 20200515
  Transmission Date: 20200714
  Serious: No
  Sender: FDA-Public Use
  Company Number: None

PATIENT
  Age: 44 Year
  Sex: Male
  Weight: 56.25 kg

DRUGS (14)
  1. CAPECITABINE. [Suspect]
     Active Substance: CAPECITABINE
     Indication: BREAST CANCER FEMALE
     Route: 048
     Dates: start: 20200427
  2. ASPIRIN. [Concomitant]
     Active Substance: ASPIRIN
  3. MAXALT [Concomitant]
     Active Substance: RIZATRIPTAN BENZOATE
  4. VITAMIN D [Concomitant]
     Active Substance: VITAMIN D NOS
  5. MARIJUANA [Concomitant]
     Active Substance: CANNABIS SATIVA SUBSP. INDICA TOP
  6. CLARITIN [Concomitant]
     Active Substance: LORATADINE
  7. HERCEPTIN [Concomitant]
     Active Substance: TRASTUZUMAB
  8. PROBIOTIC [Concomitant]
     Active Substance: PROBIOTICS NOS
  9. MAGNESIUM ACIDOPHILUS [Concomitant]
  10. CBD OIL [Concomitant]
     Active Substance: CANNABIDIOL\HERBALS
  11. FLAXSEED [Concomitant]
     Active Substance: FLAX SEED
  12. IMODIUM [Concomitant]
     Active Substance: LOPERAMIDE HYDROCHLORIDE
  13. DIGESTIVE ENZYME [Concomitant]
     Active Substance: UNSPECIFIED INGREDIENT
  14. WOB ENZYME [Concomitant]

REACTIONS (3)
  - Gastrooesophageal reflux disease [None]
  - Nausea [None]
  - Chest discomfort [None]

NARRATIVE: CASE EVENT DATE: 20200515
